FAERS Safety Report 4673927-3 (Version None)
Quarter: 2005Q2

REPORT INFORMATION
  Report Type: 
  Country: None (occurrence: None)
  Receive Date: 20050525
  Receipt Date: 20050518
  Transmission Date: 20051028
  Serious: Yes (Disabling)
  Sender: FDA-Public Use
  Company Number: AU-MERCK-0505AUS00183

PATIENT
  Sex: Male

DRUGS (11)
  1. VIOXX [Suspect]
     Indication: BACK PAIN
     Route: 048
     Dates: end: 20040901
  2. VIOXX [Suspect]
     Indication: NECK PAIN
     Route: 048
     Dates: end: 20040901
  3. ATORVASTATIN CALCIUM [Concomitant]
     Route: 065
  4. METOPROLOL [Concomitant]
     Route: 065
  5. PERINDOPRIL ERBUMINE [Concomitant]
     Route: 065
  6. PANTOPRAZOLE SODIUM [Concomitant]
     Route: 065
  7. OXYCODONE HYDROCHLORIDE [Concomitant]
     Route: 065
  8. ASPIRIN [Concomitant]
     Route: 065
  9. LACTULOSE [Concomitant]
     Route: 065
  10. PSYLLIUM HUSK [Concomitant]
     Route: 065
  11. CODEINE [Concomitant]
     Route: 065

REACTIONS (3)
  - ANGINA PECTORIS [None]
  - DYSPNOEA [None]
  - GASTROINTESTINAL PAIN [None]
